FAERS Safety Report 5657752-2 (Version None)
Quarter: 2008Q1

REPORT INFORMATION
  Report Type: 
  Country: None (occurrence: None)
  Receive Date: 20080305
  Receipt Date: 20080218
  Transmission Date: 20080703
  Serious: Yes (Other)
  Sender: FDA-Public Use
  Company Number: 2008S1002627

PATIENT
  Age: 70 Year
  Sex: Male

DRUGS (12)
  1. LISINOPRIL [Suspect]
     Indication: DRUG USE FOR UNKNOWN INDICATION
     Dosage: 20 MG; ; ORAL
     Route: 048
     Dates: start: 20080110, end: 20080121
  2. RAMIPRIL [Suspect]
     Indication: DRUG USE FOR UNKNOWN INDICATION
     Dosage: 10 MG; ; ORAL
     Route: 048
     Dates: start: 20071210, end: 20080110
  3. ADALAT [Concomitant]
  4. ASPIRIN [Concomitant]
  5. BENDROFLUMETHIAZIDE [Concomitant]
  6. CHONDROITIN [Concomitant]
  7. GLUCOSAMINE [Concomitant]
  8. PARACETAMOL [Concomitant]
  9. PERINDOPRIL [Concomitant]
  10. QVAR 40 [Concomitant]
  11. SILDENAFIL CITRATE [Concomitant]
  12. SIMVASTATIN [Concomitant]

REACTIONS (5)
  - CHEST PAIN [None]
  - CONFUSIONAL STATE [None]
  - DRY MOUTH [None]
  - FATIGUE [None]
  - MOOD SWINGS [None]
